FAERS Safety Report 21067117 (Version 1)
Quarter: 2022Q3

REPORT INFORMATION
  Report Type: Spontaneous
  Country: IT (occurrence: IT)
  Receive Date: 20220712
  Receipt Date: 20220712
  Transmission Date: 20221027
  Serious: Yes (Other)
  Sender: FDA-Public Use
  Company Number: IT-BIOVITRUM-2022IT08502

PATIENT
  Age: 71 Year
  Sex: Male

DRUGS (1)
  1. ANAKINRA [Suspect]
     Active Substance: ANAKINRA
     Indication: VEXAS syndrome

REACTIONS (2)
  - Severe cutaneous adverse reaction [Unknown]
  - Off label use [Unknown]
